FAERS Safety Report 15440236 (Version 1)
Quarter: 2018Q3

REPORT INFORMATION
  Report Type: Report from Study
  Country: MX (occurrence: MX)
  Receive Date: 20180928
  Receipt Date: 20180928
  Transmission Date: 20181010
  Serious: Yes (Other)
  Sender: FDA-Public Use
  Company Number: PHHY2018MX104326

PATIENT
  Age: 55 Year
  Sex: Female

DRUGS (1)
  1. CO?DIOVAN [Suspect]
     Active Substance: HYDROCHLOROTHIAZIDE\VALSARTAN
     Indication: HYPERTENSION
     Dosage: 2 DF, (HYDROCHLOROTHIAZIDE 12.5 MG, VALSARTAN 80 MG) QD
     Route: 048
     Dates: start: 2013, end: 201807

REACTIONS (3)
  - Malaise [Recovering/Resolving]
  - Facial paralysis [Unknown]
  - Incorrect dose administered [Unknown]

NARRATIVE: CASE EVENT DATE: 201808
